FAERS Safety Report 4894753-6 (Version None)
Quarter: 2006Q1

REPORT INFORMATION
  Report Type: 
  Country: None (occurrence: None)
  Receive Date: 20060126
  Receipt Date: 20060126
  Transmission Date: 20060701
  Serious: Yes (Other)
  Sender: FDA-Public Use
  Company Number: None

PATIENT
  Age: 53 Year
  Sex: Female
  Weight: 78.0187 kg

DRUGS (6)
  1. VIOXX [Suspect]
     Indication: ARTHRALGIA
     Dosage: 25 MG   ONCE A DAY  PO
     Route: 048
     Dates: start: 20010216, end: 20021227
  2. VIOXX [Suspect]
     Indication: AUTOIMMUNE DISORDER
     Dosage: 25 MG   ONCE A DAY  PO
     Route: 048
     Dates: start: 20010216, end: 20021227
  3. VIOXX [Suspect]
     Indication: MUSCULOSKELETAL STIFFNESS
     Dosage: 25 MG   ONCE A DAY  PO
     Route: 048
     Dates: start: 20010216, end: 20021227
  4. BEXTRA [Suspect]
     Indication: ARTHRALGIA
     Dosage: 20 MG   ONCE A DAY   PO
     Route: 048
     Dates: start: 20021008, end: 20050215
  5. BEXTRA [Suspect]
     Indication: AUTOIMMUNE DISORDER
     Dosage: 20 MG   ONCE A DAY   PO
     Route: 048
     Dates: start: 20021008, end: 20050215
  6. BEXTRA [Suspect]
     Indication: MUSCULOSKELETAL STIFFNESS
     Dosage: 20 MG   ONCE A DAY   PO
     Route: 048
     Dates: start: 20021008, end: 20050215

REACTIONS (3)
  - CARDIAC DISORDER [None]
  - VENTRICULAR EXTRASYSTOLES [None]
  - VENTRICULAR HYPERTROPHY [None]
